FAERS Safety Report 9958587 (Version 2)
Quarter: 2015Q4

REPORT INFORMATION
  Report Type: Report from Study
  Country: US (occurrence: US)
  Receive Date: 20140305
  Receipt Date: 20151211
  Transmission Date: 20160305
  Serious: Yes (Other)
  Sender: FDA-Public Use
  Company Number: US-ROCHE-1350474

PATIENT
  Age: 86 Year
  Sex: Female

DRUGS (4)
  1. LUCENTIS [Suspect]
     Active Substance: RANIBIZUMAB
     Indication: NEOVASCULAR AGE-RELATED MACULAR DEGENERATION
     Route: 050
  2. MYDRIACYL [Concomitant]
     Active Substance: TROPICAMIDE
     Route: 065
  3. AVASTIN [Suspect]
     Active Substance: BEVACIZUMAB
     Indication: AGE-RELATED MACULAR DEGENERATION
     Dosage: 1.25 MG/0.05 ML OD
     Route: 050
  4. NEO-SYNEPHRINE [Concomitant]
     Active Substance: PHENYLEPHRINE HYDROCHLORIDE
     Route: 065

REACTIONS (9)
  - Blepharitis [Unknown]
  - Visual acuity reduced [Unknown]
  - Lacrimation increased [Unknown]
  - Subretinal fluid [Unknown]
  - Dry eye [Unknown]
  - Vitreous floaters [Unknown]
  - Off label use [Unknown]
  - Vitreous degeneration [Unknown]
  - Urinary tract infection [Unknown]

NARRATIVE: CASE EVENT DATE: 2012
